FAERS Safety Report 6689196-9 (Version None)
Quarter: 2010Q2

REPORT INFORMATION
  Report Type: 
  Country: None (occurrence: None)
  Receive Date: 20100414
  Receipt Date: 20100330
  Transmission Date: 20101027
  Serious: Yes (Hospitalization)
  Sender: FDA-Public Use
  Company Number: US-JNJFOC-20100108303

PATIENT
  Age: 70 Year
  Sex: Female
  Weight: 58.5 kg

DRUGS (3)
  1. DECITABINE (DECITABINE) LYOPHILIZED [Suspect]
     Indication: ACUTE MYELOID LEUKAEMIA
     Dosage: 20 MG/M2, INTRAVENOUS, 20MG/M2, INTRAVEOUS, 20 MG/M2, INTRAVENOUS
     Route: 042
     Dates: start: 20091218, end: 20091221
  2. DECITABINE (DECITABINE) LYOPHILIZED [Suspect]
     Indication: ACUTE MYELOID LEUKAEMIA
     Dosage: 20 MG/M2, INTRAVENOUS, 20MG/M2, INTRAVEOUS, 20 MG/M2, INTRAVENOUS
     Route: 042
     Dates: start: 20100120, end: 20100123
  3. DECITABINE (DECITABINE) LYOPHILIZED [Suspect]
     Indication: ACUTE MYELOID LEUKAEMIA
     Dosage: 20 MG/M2, INTRAVENOUS, 20MG/M2, INTRAVEOUS, 20 MG/M2, INTRAVENOUS
     Route: 042
     Dates: start: 20090324

REACTIONS (20)
  - ASTHENIA [None]
  - BLOOD CULTURE POSITIVE [None]
  - CARDIAC VALVE VEGETATION [None]
  - CATHETER CULTURE POSITIVE [None]
  - CEREBRAL ISCHAEMIA [None]
  - CHILLS [None]
  - DIZZINESS [None]
  - ENDOCARDITIS [None]
  - FALL [None]
  - FEBRILE NEUTROPENIA [None]
  - HEADACHE [None]
  - HEMIPLEGIA [None]
  - INFLUENZA LIKE ILLNESS [None]
  - LEUKAEMIA RECURRENT [None]
  - MASTICATION DISORDER [None]
  - PAIN [None]
  - RIB FRACTURE [None]
  - STAPHYLOCOCCAL INFECTION [None]
  - URINARY INCONTINENCE [None]
  - WHITE BLOOD CELL COUNT DECREASED [None]
